FAERS Safety Report 14533991 (Version 15)
Quarter: 2019Q2

REPORT INFORMATION
  Report Type: Spontaneous
  Country: US (occurrence: US)
  Receive Date: 20180215
  Receipt Date: 20190520
  Transmission Date: 20190711
  Serious: Yes (Hospitalization, Other)
  Sender: FDA-Public Use
  Company Number: US-PFIZER INC-2018062188

PATIENT
  Age: 40 Year
  Sex: Female
  Weight: 89 kg

DRUGS (6)
  1. AMLODIPINE [Concomitant]
     Active Substance: AMLODIPINE BESYLATE
     Dosage: 2.5 MG, UNK
     Dates: start: 20180220
  2. NORVASC [Concomitant]
     Active Substance: AMLODIPINE BESYLATE
     Indication: BLOOD PRESSURE INCREASED
     Dosage: 10 MG, DAILY
     Dates: start: 20180220
  3. SUTENT [Suspect]
     Active Substance: SUNITINIB MALATE
     Indication: METASTATIC RENAL CELL CARCINOMA
     Dosage: 50 MG, DAILY
     Route: 048
     Dates: start: 20180125, end: 20180213
  4. AMLODIPINE [Concomitant]
     Active Substance: AMLODIPINE BESYLATE
     Dosage: 10 MG, DAILY
     Dates: start: 20180424
  5. HYDROCHLOROTHIAZIDE. [Concomitant]
     Active Substance: HYDROCHLOROTHIAZIDE
     Dosage: UNK
  6. SUTENT [Suspect]
     Active Substance: SUNITINIB MALATE
     Dosage: 50 MG, CYCLIC (28 DAYS ON/14 DAYS OFF)
     Route: 048
     Dates: start: 20180226

REACTIONS (10)
  - Macule [Unknown]
  - Epistaxis [Unknown]
  - Hypertension [Recovered/Resolved]
  - Hair colour changes [Unknown]
  - Decreased appetite [Not Recovered/Not Resolved]
  - Nail discolouration [Unknown]
  - Pallor [Unknown]
  - Ear infection [Recovered/Resolved]
  - Temporomandibular joint syndrome [Unknown]
  - Dry skin [Unknown]

NARRATIVE: CASE EVENT DATE: 2018
